FAERS Safety Report 5952661-3 (Version None)
Quarter: 2008Q4

REPORT INFORMATION
  Report Type: 
  Country: None (occurrence: None)
  Receive Date: 20081027
  Receipt Date: 20080711
  Transmission Date: 20090506
  Serious: No
  Sender: FDA-Public Use
  Company Number: PYLE-2008-019 F-UP

PATIENT
  Sex: Male

DRUGS (3)
  1. PYLERA [Suspect]
     Dosage: 3 CAPSULES QID ORAL
     Route: 048
     Dates: start: 20080619
  2. DIFLUCAN [Concomitant]
  3. PREVACID [Concomitant]

REACTIONS (7)
  - ASTHENIA [None]
  - CHEST DISCOMFORT [None]
  - DEPRESSED MOOD [None]
  - DYSGEUSIA [None]
  - ERUCTATION [None]
  - FEELING ABNORMAL [None]
  - FEELING JITTERY [None]
